FAERS Safety Report 23909946 (Version 1)
Quarter: 2024Q2

REPORT INFORMATION
  Report Type: Report from Study
  Country: GB (occurrence: GB)
  Receive Date: 20240528
  Receipt Date: 20240528
  Transmission Date: 20240716
  Serious: Yes (Other)
  Sender: FDA-Public Use
  Company Number: GB-SANDOZ-SDZ2024GB052463

PATIENT
  Sex: Female

DRUGS (1)
  1. HYRIMOZ [Suspect]
     Active Substance: ADALIMUMAB-ADAZ
     Indication: Hidradenitis
     Dosage: 40 MG, QW (40MG/0.4ML SOLUTION FOR INJECTION PRE-FILLED PEN)
     Route: 058
     Dates: start: 20240404

REACTIONS (3)
  - Autism spectrum disorder [Unknown]
  - Stress [Unknown]
  - Fear of injection [Unknown]
